FAERS Safety Report 24818228 (Version 1)
Quarter: 2025Q1

REPORT INFORMATION
  Report Type: Spontaneous
  Country: US (occurrence: US)
  Receive Date: 20250108
  Receipt Date: 20250108
  Transmission Date: 20250409
  Serious: Yes (Other)
  Sender: SAMSUNG BIOEPIS
  Company Number: US-SAMSUNG BIOEPIS-SB-2025-00168

PATIENT
  Age: 36 Year
  Sex: Male

DRUGS (2)
  1. INFLIXIMAB [Suspect]
     Active Substance: INFLIXIMAB
     Indication: Crohn^s disease
  2. MERCAPTOPURINE [Suspect]
     Active Substance: MERCAPTOPURINE
     Indication: Crohn^s disease

REACTIONS (8)
  - Pancytopenia [Unknown]
  - Rectal ulcer [Recovered/Resolved]
  - Oesophageal candidiasis [Unknown]
  - Kaposi^s sarcoma [Unknown]
  - HIV infection [Unknown]
  - Syphilis [Unknown]
  - Proctitis [Recovered/Resolved]
  - Drug level below therapeutic [Unknown]
